FAERS Safety Report 20999703 (Version 1)
Quarter: 2022Q3

REPORT INFORMATION
  Report Type: Report from Study
  Country: EG (occurrence: EG)
  Receive Date: 20220623
  Receipt Date: 20220623
  Transmission Date: 20221026
  Serious: Yes (Life-Threatening)
  Sender: FDA-Public Use
  Company Number: EG-NOVARTISPH-NVSC2022EG143300

PATIENT
  Age: 38 Year
  Sex: Male

DRUGS (3)
  1. HYRIMOZ [Suspect]
     Active Substance: ADALIMUMAB-ADAZ
     Indication: Rheumatoid arthritis
     Dosage: 40 MG, Q2W
     Route: 058
     Dates: start: 20220301, end: 20220331
  2. PLAQUENIL [Concomitant]
     Active Substance: HYDROXYCHLOROQUINE SULFATE
     Indication: Rheumatoid arthritis
     Dosage: 1 DOSAGE FORM, BID (1 TAB IN MORNING AND 1 TAB IN EVENING)
     Route: 065
     Dates: start: 20220201
  3. LEFLUNOMIDE [Concomitant]
     Active Substance: LEFLUNOMIDE
     Indication: Rheumatoid arthritis
     Dosage: 1 DOSAGE FORM, QD (1 TAB AFTER LUNCH)
     Route: 065
     Dates: start: 20220215

REACTIONS (2)
  - Disease recurrence [Not Recovered/Not Resolved]
  - Movement disorder [Not Recovered/Not Resolved]

NARRATIVE: CASE EVENT DATE: 20220410
